FAERS Safety Report 19196832 (Version 1)
Quarter: 2021Q2

REPORT INFORMATION
  Report Type: Spontaneous
  Country: JP (occurrence: JP)
  Receive Date: 20210429
  Receipt Date: 20210429
  Transmission Date: 20210717
  Serious: Yes (Death)
  Sender: FDA-Public Use
  Company Number: JP-ROCHE-2820117

PATIENT
  Age: 7 Decade
  Sex: Male

DRUGS (3)
  1. LOXOPROFEN [Concomitant]
     Active Substance: LOXOPROFEN
     Indication: BACK PAIN
  2. XARELTO [Concomitant]
     Active Substance: RIVAROXABAN
     Indication: CARDIAC DYSFUNCTION
     Route: 065
  3. ROZLYTREK [Suspect]
     Active Substance: ENTRECTINIB
     Indication: NON-SMALL CELL LUNG CANCER
     Dosage: DOSAGE IS UNCERTAIN.
     Route: 048
     Dates: start: 20210409, end: 20210413

REACTIONS (2)
  - Thrombotic cerebral infarction [Fatal]
  - Artery dissection [Fatal]
